FAERS Safety Report 17673279 (Version 2)
Quarter: 2020Q2

REPORT INFORMATION
  Report Type: Spontaneous
  Country: RO (occurrence: RO)
  Receive Date: 20200416
  Receipt Date: 20200420
  Transmission Date: 20200713
  Serious: Yes (Death)
  Sender: FDA-Public Use
  Company Number: RO-ROCHE-2581054

PATIENT

DRUGS (2)
  1. ROACTEMRA [Suspect]
     Active Substance: TOCILIZUMAB
     Indication: CORONAVIRUS INFECTION
     Dosage: NO
     Route: 042
  2. ROACTEMRA [Suspect]
     Active Substance: TOCILIZUMAB
     Dosage: PATIENT RECEIVED 6 VIALS OF TOCILIZUMAB 400 MG, 3 VIALS ON FIRST ADMINISTRATION AND 3 VIALS ON THE S
     Route: 042

REACTIONS (3)
  - Off label use [Unknown]
  - Intentional product use issue [Unknown]
  - Death [Fatal]
